FAERS Safety Report 23403381 (Version 2)
Quarter: 2024Q1

REPORT INFORMATION
  Report Type: Spontaneous
  Country: FR (occurrence: FR)
  Receive Date: 20240116
  Receipt Date: 20240129
  Transmission Date: 20240410
  Serious: Yes (Hospitalization)
  Sender: FDA-Public Use
  Company Number: None

PATIENT
  Age: 97 Year
  Sex: Female
  Weight: 68.8 kg

DRUGS (1)
  1. VIMPAT [Suspect]
     Active Substance: LACOSAMIDE
     Indication: Product used for unknown indication
     Dosage: THE PATIENT RECEIVED 3 X 150 MG AT EACH DOSE INTAKE INSTEAD OF 3 X 50 MG
     Route: 048
     Dates: start: 20231223, end: 20231226

REACTIONS (6)
  - Somnolence [Recovered/Resolved]
  - Epilepsy [Recovered/Resolved]
  - Pneumonia aspiration [Recovered/Resolved]
  - Overdose [Unknown]
  - Wrong strength [Unknown]
  - Product dispensing error [Unknown]

NARRATIVE: CASE EVENT DATE: 20231223
